FAERS Safety Report 6844288-6 (Version None)
Quarter: 2010Q3

REPORT INFORMATION
  Report Type: 
  Country: None (occurrence: None)
  Receive Date: 20100715
  Receipt Date: 20100707
  Transmission Date: 20110219
  Serious: Yes (Other)
  Sender: FDA-Public Use
  Company Number: US-PFIZER INC-2010085523

PATIENT
  Sex: Female
  Weight: 98 kg

DRUGS (5)
  1. LIPITOR [Suspect]
     Indication: BLOOD CHOLESTEROL INCREASED
     Dosage: UNK, DAILY
     Route: 048
  2. METOPROLOL [Concomitant]
     Indication: HYPERTENSION
     Dosage: UNK
  3. METFORMIN [Concomitant]
     Dosage: UNK
  4. GLIPIZIDE [Concomitant]
     Dosage: UNK
  5. COENZYME Q10 [Concomitant]
     Dosage: UNK

REACTIONS (1)
  - BLOOD CALCIUM INCREASED [None]
